FAERS Safety Report 6759034-4 (Version None)
Quarter: 2010Q2

REPORT INFORMATION
  Report Type: 
  Country: None (occurrence: None)
  Receive Date: 20100602
  Receipt Date: 20100517
  Transmission Date: 20101027
  Serious: Yes (Hospitalization, Other)
  Sender: FDA-Public Use
  Company Number: 2009S1003965

PATIENT
  Age: 70 Year
  Sex: Female

DRUGS (8)
  1. PHOSPHOSODA FLAVOR NOT SPECIFIED [Suspect]
     Indication: COLONOSCOPY
     Dosage: 75 ML; TOTAL; PO
     Route: 048
     Dates: start: 20010204, end: 20010204
  2. SYNTHROID [Concomitant]
  3. CORGARD [Concomitant]
  4. LOTENSIN [Concomitant]
  5. HYDROCHLOROTHIAZIDE [Concomitant]
  6. ASPIRIN [Concomitant]
  7. GLUCOTROL XL [Concomitant]
  8. URISED [Concomitant]

REACTIONS (12)
  - ABDOMINAL DISTENSION [None]
  - DEHYDRATION [None]
  - DYSPEPSIA [None]
  - DYSURIA [None]
  - HYPOVOLAEMIA [None]
  - MUSCLE SPASMS [None]
  - NAUSEA [None]
  - RENAL FAILURE ACUTE [None]
  - RENAL FAILURE CHRONIC [None]
  - RENAL TUBULAR NECROSIS [None]
  - SINUSITIS [None]
  - VOMITING [None]
